FAERS Safety Report 8784602 (Version 1)
Quarter: 2012Q4

REPORT INFORMATION
  Report Type: Spontaneous
  Country: US (occurrence: None)
  Receive Date: 20120907
  Receipt Date: 20120907
  Transmission Date: 20130627
  Serious: Yes (Other)
  Sender: FDA-Public Use
  Company Number: None

PATIENT
  Age: 32 Year
  Sex: Female
  Weight: 100.7 kg

DRUGS (2)
  1. MONTELUKAST [Suspect]
     Indication: ASTHMA
     Dates: start: 20120821
  2. MONTELUKAST [Suspect]
     Indication: ALLERGIC RHINITIS
     Dates: start: 20120821

REACTIONS (2)
  - Dyspepsia [None]
  - Product substitution issue [None]
